FAERS Safety Report 14618513 (Version 1)
Quarter: 2018Q1

REPORT INFORMATION
  Report Type: Spontaneous
  Country: US (occurrence: US)
  Receive Date: 20180309
  Receipt Date: 20180309
  Transmission Date: 20180509
  Serious: No
  Sender: FDA-Public Use
  Company Number: US-MYLANLABS-2018M1012741

PATIENT
  Age: 86 Year
  Sex: Male
  Weight: 199 kg

DRUGS (1)
  1. MUSE [Suspect]
     Active Substance: ALPROSTADIL
     Indication: ERECTILE DYSFUNCTION
     Dosage: UNK
     Route: 066
     Dates: start: 201708

REACTIONS (2)
  - Wrong technique in device usage process [None]
  - Device use error [Recovered/Resolved]

NARRATIVE: CASE EVENT DATE: 201708
